FAERS Safety Report 9931977 (Version 1)
Quarter: 2014Q1

REPORT INFORMATION
  Report Type: Spontaneous
  Country: US (occurrence: US)
  Receive Date: 20140228
  Receipt Date: 20140228
  Transmission Date: 20141002
  Serious: No
  Sender: FDA-Public Use
  Company Number: US-ABBVIE-13P-163-1121785-00

PATIENT
  Age: 66 Year
  Sex: Male
  Weight: 95.34 kg

DRUGS (4)
  1. ANDROGEL [Suspect]
     Indication: BLOOD TESTOSTERONE DECREASED
     Route: 061
     Dates: start: 201304, end: 20130705
  2. ANDROGEL [Suspect]
     Dosage: PRESCRIBED AS APPLY Q 4 DAYS AND OFF Q3 DAYS
     Route: 061
     Dates: start: 20130706
  3. HYDROCHLOROTHIAZIDE [Concomitant]
     Indication: FLUID RETENTION
  4. LOSARTAN [Concomitant]
     Indication: HYPERTENSION

REACTIONS (2)
  - Inappropriate schedule of drug administration [Not Recovered/Not Resolved]
  - Blood testosterone decreased [Not Recovered/Not Resolved]
